FAERS Safety Report 23836553 (Version 1)
Quarter: 2024Q2

REPORT INFORMATION
  Report Type: Report from Study
  Country: US (occurrence: US)
  Receive Date: 20240509
  Receipt Date: 20240509
  Transmission Date: 20240717
  Serious: Yes (Other)
  Sender: FDA-Public Use
  Company Number: US-MYLANLABS-2024M1041276

PATIENT
  Age: 55 Year
  Sex: Female

DRUGS (1)
  1. GLATIRAMER ACETATE [Suspect]
     Active Substance: GLATIRAMER ACETATE
     Indication: Progressive multiple sclerosis
     Dosage: 40 MILLIGRAM PER MILLILITRE, 3XW (THREE TIMES PER WEEK)
     Route: 065
     Dates: start: 20240501

REACTIONS (1)
  - Progressive multiple sclerosis [Unknown]

NARRATIVE: CASE EVENT DATE: 20240501
